FAERS Safety Report 9882581 (Version 3)
Quarter: 2014Q3

REPORT INFORMATION
  Report Type: Spontaneous
  Country: DK (occurrence: JP)
  Receive Date: 20140207
  Receipt Date: 20140909
  Transmission Date: 20150326
  Serious: Yes (Other)
  Sender: FDA-Public Use
  Company Number: JP-FRI-1000053960

PATIENT
  Age: 29 Year
  Sex: Female

DRUGS (4)
  1. PARIET [Concomitant]
     Active Substance: RABEPRAZOLE SODIUM
     Indication: GASTROOESOPHAGEAL REFLUX DISEASE
     Dosage: 10 MG
     Route: 048
     Dates: start: 20120608, end: 20131126
  2. WYPAX [Concomitant]
     Active Substance: LORAZEPAM
     Indication: AUTONOMIC NERVOUS SYSTEM IMBALANCE
     Dosage: 3 MG
     Route: 048
     Dates: start: 20110929
  3. LEXAPRO [Suspect]
     Active Substance: ESCITALOPRAM OXALATE
     Indication: DEPRESSION
     Dosage: 10 MG
     Route: 048
     Dates: start: 20130524, end: 20131126
  4. SOLANAX [Concomitant]
     Active Substance: ALPRAZOLAM
     Indication: AUTONOMIC NERVOUS SYSTEM IMBALANCE
     Dosage: 0.4 MG
     Route: 048
     Dates: start: 20110927

REACTIONS (1)
  - Hepatic function abnormal [Recovered/Resolved]

NARRATIVE: CASE EVENT DATE: 20130805
